FAERS Safety Report 8402153-7 (Version None)
Quarter: 2012Q2

REPORT INFORMATION
  Report Type: 
  Country: None (occurrence: None)
  Receive Date: 20120601
  Receipt Date: 20120518
  Transmission Date: 20120825
  Serious: Yes (Death)
  Sender: FDA-Public Use
  Company Number: JP-NAPPMUNDI-MAG-2012-0002142

PATIENT
  Sex: Female
  Weight: 42 kg

DRUGS (9)
  1. ALFAROL [Concomitant]
     Indication: OSTEOPOROSIS
     Dosage: 1 DF, DAILY
     Route: 048
     Dates: start: 20090707, end: 20120221
  2. TOCOPHEROL                         /00110502/ [Concomitant]
     Indication: PERIPHERAL CIRCULATORY FAILURE
     Dosage: 600 MG, DAILY
     Route: 048
     Dates: start: 20111122, end: 20111222
  3. BUPRENORPHINE [Suspect]
     Indication: OSTEOPOROSIS
  4. OLMESARTAN MEDOXOMIL [Concomitant]
     Indication: HYPERTENSION
     Dosage: 1 DF, DAILY
     Route: 048
     Dates: start: 20090707, end: 20120221
  5. BUPRENORPHINE [Suspect]
     Indication: OSTEOARTHRITIS
     Dosage: 5 MCG, Q1H
     Route: 062
     Dates: start: 20111122, end: 20111222
  6. MOBIC [Concomitant]
     Indication: PAIN
     Dosage: 1 DF, DAILY
     Route: 048
     Dates: start: 20090707, end: 20120221
  7. LANSOPRAZOLE [Concomitant]
     Indication: OSTEOPOROSIS
     Dosage: 1 DF, DAILY
     Route: 048
     Dates: start: 20090707, end: 20120221
  8. ALENDRONATE SODIUM [Concomitant]
     Indication: OSTEOPOROSIS
     Dosage: 1 DF, DAILY
     Route: 048
     Dates: start: 20090707, end: 20120221
  9. BUPRENORPHINE [Suspect]
     Indication: SPINAL COMPRESSION FRACTURE

REACTIONS (1)
  - MYOCARDIAL ISCHAEMIA [None]
